FAERS Safety Report 15121012 (Version 12)
Quarter: 2020Q4

REPORT INFORMATION
  Report Type: Spontaneous
  Country: US (occurrence: US)
  Receive Date: 20180709
  Receipt Date: 20201207
  Transmission Date: 20210113
  Serious: No
  Sender: FDA-Public Use
  Company Number: US-SA-2018SA182682

PATIENT

DRUGS (3)
  1. CLINDAMYCIN. [Concomitant]
     Active Substance: CLINDAMYCIN
     Dosage: UNK
  2. DUPIXENT [Suspect]
     Active Substance: DUPILUMAB
     Dosage: 300 MG, QOW
     Route: 058
     Dates: start: 2018
  3. DUPIXENT [Suspect]
     Active Substance: DUPILUMAB
     Indication: DERMATITIS ATOPIC
     Dosage: 600 MG, 1X
     Route: 058
     Dates: start: 201805, end: 201805

REACTIONS (20)
  - Sinusitis [Unknown]
  - Dry skin [Unknown]
  - Nasal congestion [Unknown]
  - Product dose omission issue [Unknown]
  - Therapeutic response shortened [Unknown]
  - Injection site rash [Unknown]
  - Injection site pruritus [Unknown]
  - Injection site reaction [Unknown]
  - Pruritus [Unknown]
  - Wheezing [Unknown]
  - Rhinorrhoea [Unknown]
  - Rash papular [Unknown]
  - Paranasal sinus hypersecretion [Unknown]
  - Rash [Unknown]
  - Injection site pain [Unknown]
  - Rash pruritic [Unknown]
  - Urticaria [Unknown]
  - Therapeutic response decreased [Unknown]
  - Sinus congestion [Unknown]
  - Sensory disturbance [Unknown]
